FAERS Safety Report 4269265-3 (Version None)
Quarter: 2004Q1

REPORT INFORMATION
  Report Type: 
  Country: None (occurrence: None)
  Receive Date: 20040109
  Receipt Date: 20031229
  Transmission Date: 20041129
  Serious: No
  Sender: FDA-Public Use
  Company Number: THYR-10107

PATIENT
  Age: 73 Year
  Sex: Female
  Weight: 57 kg

DRUGS (2)
  1. THYROGEN [Suspect]
     Dosage: 0.01 MG IM
     Dates: start: 20001018, end: 20011206
  2. IODINE I-131 DIAGNOSTIC SOLUTION [Suspect]
     Indication: GOITRE
     Dates: start: 19991206, end: 19991206

REACTIONS (3)
  - CARDIAC FAILURE [None]
  - HYPERTHYROIDISM [None]
  - LEUKOPENIA [None]
